FAERS Safety Report 9918839 (Version 2)
Quarter: 2014Q2

REPORT INFORMATION
  Report Type: Spontaneous
  Country: US (occurrence: US)
  Receive Date: 20140224
  Receipt Date: 20140424
  Transmission Date: 20141212
  Serious: Yes (Other)
  Sender: FDA-Public Use
  Company Number: US-AMGEN-USASP2014012426

PATIENT
  Age: 68 Year
  Sex: Male
  Weight: 92.97 kg

DRUGS (9)
  1. ENBREL [Suspect]
     Indication: PRODUCT USED FOR UNKNOWN INDICATION
     Dosage: 50 MG, QWK
     Route: 058
  2. JANUVIA [Concomitant]
     Dosage: 25 MG, UNK
  3. AMLODIPINE [Concomitant]
     Dosage: 2.5 MG, UNK
  4. GLIPIZIDE [Concomitant]
     Dosage: 5 MG, UNK
  5. MAGNESIUM [Concomitant]
     Dosage: 30 MG, UNK
  6. ATORVASTATIN [Concomitant]
     Dosage: 10 MG, UNK
  7. AGGRENOX [Concomitant]
     Dosage: 25-200 MG
  8. VITAMIN B12                        /00056201/ [Concomitant]
     Dosage: 250 MCG, UNK
  9. FOLIC ACID [Concomitant]
     Dosage: UNK

REACTIONS (4)
  - Myocardial infarction [Unknown]
  - Psoriasis [Unknown]
  - Drug effect incomplete [Unknown]
  - Body height decreased [Unknown]
